FAERS Safety Report 23817741 (Version 1)
Quarter: 2024Q2

REPORT INFORMATION
  Report Type: Report from Study
  Country: CA (occurrence: CA)
  Receive Date: 20240506
  Receipt Date: 20240506
  Transmission Date: 20240716
  Serious: Yes (Other)
  Sender: FDA-Public Use
  Company Number: CA-JAMP PHARMA CORPORATION-2023-JAM-CA-00811

PATIENT
  Age: 30 Year
  Sex: Male

DRUGS (2)
  1. SIMLANDI [Suspect]
     Active Substance: ADALIMUMAB-RYVK
     Indication: Crohn^s disease
     Dosage: 40 MG, EVERY 2 WEEKS
     Route: 058
     Dates: start: 20240208
  2. SIMLANDI [Suspect]
     Active Substance: ADALIMUMAB-RYVK
     Indication: Crohn^s disease
     Dosage: UNK MG
     Route: 058
     Dates: start: 20230420, end: 20240111

REACTIONS (8)
  - Uveitis [Not Recovered/Not Resolved]
  - Nasal discharge discolouration [Unknown]
  - Malaise [Unknown]
  - Injection site erythema [Unknown]
  - Injection site pain [Unknown]
  - Infection [Recovered/Resolved]
  - Nasal congestion [Unknown]
  - Exposure to fungus [Unknown]
